FAERS Safety Report 7089438-4 (Version None)
Quarter: 2010Q4

REPORT INFORMATION
  Report Type: 
  Country: None (occurrence: None)
  Receive Date: 20101108
  Receipt Date: 20101101
  Transmission Date: 20110411
  Serious: Yes (Hospitalization)
  Sender: FDA-Public Use
  Company Number: TH-PFIZER INC-2010139083

PATIENT
  Age: 73 Year
  Sex: Male

DRUGS (4)
  1. CERENEU [Suspect]
     Dosage: 500 MG, SINGLE
     Dates: start: 20100323, end: 20100323
  2. PHENYTOIN [Suspect]
     Dosage: 300 MG, 1X/DAY
     Route: 048
     Dates: start: 20100319, end: 20100323
  3. PHENYTOIN [Suspect]
     Dosage: 300 MG, 1X/DAY
     Route: 048
     Dates: start: 20100325, end: 20100327
  4. PHENYTOIN SODIUM [Suspect]
     Dosage: 100 MG, 3X/DAY
     Route: 042
     Dates: start: 20100324, end: 20100325

REACTIONS (3)
  - EYELID OEDEMA [None]
  - PYREXIA [None]
  - RASH MACULO-PAPULAR [None]
